FAERS Safety Report 9049985 (Version 2)
Quarter: 2013Q3

REPORT INFORMATION
  Report Type: Report from Study
  Country: JP (occurrence: JP)
  Receive Date: 20130205
  Receipt Date: 20130903
  Transmission Date: 20140515
  Serious: Yes (Other)
  Sender: FDA-Public Use
  Company Number: JP-VERTEX PHARMACEUTICALS INC.-2013-001502

PATIENT
  Age: 44 Year
  Sex: Male

DRUGS (10)
  1. VX-950 (TELAPREVIR) [Suspect]
     Indication: CHRONIC HEPATITIS C
     Dosage: 1500 MG, QD
     Route: 048
     Dates: start: 20120404, end: 20120626
  2. RIBAVIRIN [Concomitant]
     Dosage: 800 MG, QD
     Route: 048
     Dates: start: 20120404
  3. PEGINTERFERON ALFA-2B [Concomitant]
     Dosage: 1.5 ?G/KG, QW
     Route: 058
     Dates: start: 20120404
  4. ZOPICOOL [Concomitant]
     Dosage: 7.5 MG, PRN
     Route: 048
     Dates: start: 20120404
  5. ZOPICOOL [Concomitant]
     Dosage: 7.5 MG, QD
     Route: 048
     Dates: end: 20120918
  6. LOXOPROFEN [Concomitant]
     Dosage: 60 MG, PRN
     Route: 048
     Dates: start: 20120404, end: 20120426
  7. NEUROTROPIN [Concomitant]
     Dosage: 16 DF, QD
     Route: 048
     Dates: start: 20120406, end: 20120524
  8. MYONAL [Concomitant]
     Dosage: 150 MG, QD
     Route: 048
     Dates: start: 20120406, end: 20120524
  9. TAKEPRON [Concomitant]
     Dosage: 15 MG, QD
     Route: 048
     Dates: start: 20120426, end: 20120524
  10. ALESION [Concomitant]
     Dosage: 20 MG, QD
     Route: 048
     Dates: start: 20120509, end: 20120518

REACTIONS (2)
  - White blood cell count decreased [Recovered/Resolved]
  - Neutrophil percentage decreased [Recovered/Resolved]
